FAERS Safety Report 7515566-2 (Version None)
Quarter: 2011Q2

REPORT INFORMATION
  Report Type: 
  Country: None (occurrence: None)
  Receive Date: 20110601
  Receipt Date: 20110523
  Transmission Date: 20111010
  Serious: Yes (Hospitalization, Other)
  Sender: FDA-Public Use
  Company Number: US-ASTRAZENECA-2011SE31751

PATIENT
  Age: 61 Year
  Sex: Female

DRUGS (5)
  1. SEROQUEL [Suspect]
     Indication: IRRITABLE BOWEL SYNDROME
     Route: 048
     Dates: start: 20080101
  2. VICODON [Concomitant]
     Indication: PAIN
  3. NEXIUM [Suspect]
     Route: 048
  4. ZOFRAN [Concomitant]
     Indication: NAUSEA
  5. BELLADONNA [Concomitant]

REACTIONS (7)
  - HEADACHE [None]
  - BRAIN TUMOUR OPERATION [None]
  - OFF LABEL USE [None]
  - PAIN [None]
  - BRAIN CANCER METASTATIC [None]
  - NAUSEA [None]
  - MALAISE [None]
